FAERS Safety Report 18973919 (Version 3)
Quarter: 2021Q1

REPORT INFORMATION
  Report Type: Spontaneous
  Country: US (occurrence: US)
  Receive Date: 20210305
  Receipt Date: 20210330
  Transmission Date: 20210420
  Serious: Yes (Other)
  Sender: FDA-Public Use
  Company Number: US-SA-2021SA063689

PATIENT
  Age: 88 Year
  Sex: Male

DRUGS (1)
  1. APIDRA [Suspect]
     Active Substance: INSULIN GLULISINE
     Indication: TYPE 1 DIABETES MELLITUS
     Dosage: SLIDING SCALE ACCORDING TO WHAT HE EATS (WITH MEALS AND SNACKS), 1 UNIT PER 40 POINTS
     Route: 065

REACTIONS (7)
  - Feeling abnormal [Unknown]
  - Extra dose administered [Unknown]
  - Diabetes mellitus inadequate control [Unknown]
  - Drug ineffective [Unknown]
  - Musculoskeletal stiffness [Unknown]
  - Product temperature excursion issue [Unknown]
  - Frustration tolerance decreased [Unknown]

NARRATIVE: CASE EVENT DATE: 20210215
